FAERS Safety Report 9513661 (Version 1)
Quarter: 2013Q1

REPORT INFORMATION
  Report Type: Spontaneous
  Country: US (occurrence: None)
  Receive Date: 20130305
  Receipt Date: 20130305
  Transmission Date: 20140127
  Serious: Yes (Other)
  Sender: FDA-Public Use
  Company Number: 163-21880-12091985

PATIENT
  Age: 54 Year
  Sex: Female

DRUGS (9)
  1. REVLIMID (LENALIDOMIDE) (CAPSULES) [Suspect]
     Indication: PLASMA CELL MYELOMA
     Route: 048
     Dates: start: 20120202
  2. JANUVIA (SITAGLIPTIN PHOSPHATE) [Concomitant]
  3. DEXAMETHASONE (DEXAMETHASONE) [Concomitant]
  4. NORVASC (AMLODIPINE BESILATE) [Concomitant]
  5. GLUCOPHAGE (METFORMIN HYDROCHLORIDE) [Concomitant]
  6. HYDROCODONE-HOMATROPINE (HYDROCODONE COMPOUND) [Concomitant]
  7. TOPROL XL (METOPROLOL SUCCINATE) (100 MILLIGRAM) (METOPROLOL SUCCINATE) [Concomitant]
  8. CYANOCOBALAMIN (CYANOCOBALAMIN) [Concomitant]
  9. GLIPIZIDE XL (GLIPIZIDE) [Concomitant]

REACTIONS (1)
  - Drug dose omission [None]
